FAERS Safety Report 7329484-6 (Version None)
Quarter: 2011Q1

REPORT INFORMATION
  Report Type: 
  Country: None (occurrence: None)
  Receive Date: 20110303
  Receipt Date: 20110228
  Transmission Date: 20110831
  Serious: Yes (Other)
  Sender: FDA-Public Use
  Company Number: JP-PFIZER INC-2011042427

PATIENT
  Age: 39 Year
  Sex: Female

DRUGS (1)
  1. SOLANAX [Suspect]
     Dosage: 0.4MG DAILY
     Route: 048
     Dates: start: 20110201

REACTIONS (4)
  - INFECTION [None]
  - LYMPHADENOPATHY [None]
  - GINGIVAL SWELLING [None]
  - SWELLING FACE [None]
